FAERS Safety Report 8941210 (Version 2)
Quarter: 2012Q4

REPORT INFORMATION
  Report Type: 
  Country: US (occurrence: US)
  Receive Date: 20121121
  Receipt Date: 20121212
  Transmission Date: 20130627
  Serious: Yes (Death)
  Sender: FDA-Public Use
  Company Number: US-ASTELLAS-1113844

PATIENT
  Age: 88 Year
  Sex: Female

DRUGS (1)
  1. TARCEVA [Suspect]
     Indication: BREAST CANCER FEMALE
     Route: 048
     Dates: start: 20060331

REACTIONS (7)
  - Chronic obstructive pulmonary disease [Fatal]
  - Malnutrition [Fatal]
  - Cachexia [Fatal]
  - Pleural effusion [Fatal]
  - Asthenia [Fatal]
  - Clostridium difficile colitis [Fatal]
  - Skin ulcer [Fatal]
